FAERS Safety Report 7783196-3 (Version None)
Quarter: 2011Q3

REPORT INFORMATION
  Report Type: 
  Country: None (occurrence: None)
  Receive Date: 20110928
  Receipt Date: 20100322
  Transmission Date: 20111222
  Serious: No
  Sender: FDA-Public Use
  Company Number: US-MYLANLABS-2010S1003909

PATIENT
  Age: 76 Year
  Sex: Male

DRUGS (2)
  1. NITRGLYCERIN TRANSDERMAL SYSTEM [Suspect]
     Indication: CARDIAC DISORDER
     Dosage: QD
     Route: 062
  2. TYLENOL-500 [Concomitant]

REACTIONS (2)
  - FATIGUE [None]
  - INCORRECT DRUG ADMINISTRATION DURATION [None]
